FAERS Safety Report 7177566-4 (Version None)
Quarter: 2010Q4

REPORT INFORMATION
  Report Type: 
  Country: None (occurrence: None)
  Receive Date: 20101220
  Receipt Date: 20101209
  Transmission Date: 20110411
  Serious: Yes (Other)
  Sender: FDA-Public Use
  Company Number: FR-ELI_LILLY_AND_COMPANY-FR201012002958

PATIENT
  Age: 44 Year
  Sex: Male

DRUGS (3)
  1. BYETTA [Suspect]
     Dosage: 10 UG, UNKNOWN
     Route: 058
  2. METFORMIN HCL [Concomitant]
  3. SULFAMIDE [Concomitant]

REACTIONS (3)
  - BLOOD GLUCOSE FLUCTUATION [None]
  - INJECTION SITE PAIN [None]
  - WEIGHT DECREASED [None]
